FAERS Safety Report 24803851 (Version 2)
Quarter: 2025Q1

REPORT INFORMATION
  Report Type: Spontaneous
  Country: US (occurrence: US)
  Receive Date: 20250103
  Receipt Date: 20250108
  Transmission Date: 20250409
  Serious: No
  Sender: Haleon PLC
  Company Number: US-HALEON-2219116

PATIENT

DRUGS (2)
  1. NICODERM CQ [Suspect]
     Active Substance: NICOTINE
     Indication: COVID-19
     Route: 065
  2. NICODERM CQ [Suspect]
     Active Substance: NICOTINE
     Route: 065

REACTIONS (3)
  - Dizziness [Recovered/Resolved]
  - Product use in unapproved indication [Unknown]
  - Product adhesion issue [Unknown]
